FAERS Safety Report 7350409-1 (Version None)
Quarter: 2011Q1

REPORT INFORMATION
  Report Type: 
  Country: None (occurrence: None)
  Receive Date: 20110314
  Receipt Date: 20110303
  Transmission Date: 20110831
  Serious: Yes (Hospitalization, Other)
  Sender: FDA-Public Use
  Company Number: JP-CELGENEUS-087-21880-11020310

PATIENT
  Sex: Male
  Weight: 54 kg

DRUGS (9)
  1. LAMISIL [Concomitant]
     Route: 048
  2. STEROID [Concomitant]
     Route: 065
  3. NORVASC [Concomitant]
     Route: 048
  4. BASEN [Concomitant]
     Route: 048
  5. GLYBURIDE [Concomitant]
     Route: 048
  6. REVLIMID [Suspect]
     Indication: MULTIPLE MYELOMA
     Dosage: 25 MILLIGRAM
     Route: 048
     Dates: start: 20101222, end: 20101229
  7. LENADEX [Suspect]
     Route: 048
  8. GASTER D [Concomitant]
     Route: 048
  9. HARNAL D [Concomitant]
     Route: 048

REACTIONS (2)
  - RESPIRATORY FAILURE [None]
  - PULMONARY ALVEOLAR HAEMORRHAGE [None]
